FAERS Safety Report 17944294 (Version 6)
Quarter: 2022Q3

REPORT INFORMATION
  Report Type: Report from Study
  Country: CA (occurrence: CA)
  Receive Date: 20200625
  Receipt Date: 20220711
  Transmission Date: 20221026
  Serious: Yes (Hospitalization, Other)
  Sender: FDA-Public Use
  Company Number: CA-GLAXOSMITHKLINE-CA2020AMR105667

PATIENT

DRUGS (1)
  1. MEPOLIZUMAB [Suspect]
     Active Substance: MEPOLIZUMAB
     Indication: Asthma
     Dosage: 100 MG, Z(MONTHLY)
     Route: 042
     Dates: start: 20170519

REACTIONS (11)
  - Loss of consciousness [Recovering/Resolving]
  - Head injury [Recovering/Resolving]
  - Memory impairment [Unknown]
  - Tremor [Unknown]
  - Fall [Unknown]
  - Dizziness [Unknown]
  - Vertigo positional [Recovering/Resolving]
  - Asthenia [Unknown]
  - Foreign body in ear [Unknown]
  - Ear congestion [Unknown]
  - Balance disorder [Unknown]
